FAERS Safety Report 9450821 (Version 1)
Quarter: 2013Q3

REPORT INFORMATION
  Report Type: Spontaneous
  Country: US (occurrence: US)
  Receive Date: 20130809
  Receipt Date: 20130809
  Transmission Date: 20140515
  Serious: Yes (Disabling)
  Sender: FDA-Public Use
  Company Number: US-BAYER-2013-093407

PATIENT
  Sex: Male

DRUGS (1)
  1. CIPRO [Suspect]
     Dosage: UNK
     Dates: start: 20110906

REACTIONS (5)
  - Abasia [None]
  - Tendon rupture [None]
  - Tendon injury [None]
  - Fibromyalgia [None]
  - Tendon pain [None]
